FAERS Safety Report 8034447-1 (Version None)
Quarter: 2012Q1

REPORT INFORMATION
  Report Type: 
  Country: None (occurrence: None)
  Receive Date: 20120110
  Receipt Date: 20120105
  Transmission Date: 20120608
  Serious: Yes (Other)
  Sender: FDA-Public Use
  Company Number: US-PFIZER INC-2012004598

PATIENT
  Sex: Female
  Weight: 88 kg

DRUGS (11)
  1. METOCLOPRAMIDE [Concomitant]
     Dosage: 10 MG, 4X/DAY
  2. PRISTIQ [Suspect]
     Indication: DEPRESSION
     Dosage: 100 MG, DAILY
     Dates: start: 20110101
  3. OXYCODONE [Concomitant]
     Dosage: 7.5/325MG, 3X/DAY
  4. KLONOPIN [Suspect]
     Indication: ANXIETY
     Dosage: 1 MG, 2X/DAY
  5. SOMA [Concomitant]
     Dosage: 350 MG, 3X/DAY
  6. PROVENTIL-HFA [Concomitant]
     Indication: CHRONIC OBSTRUCTIVE PULMONARY DISEASE
     Dosage: 2 PUFFS, AS NEEDED
  7. NEXIUM [Concomitant]
     Dosage: 40 MG, DAILY
  8. ZANTAC [Concomitant]
     Dosage: 150 MG, 3X/DAY
  9. OXYBUTYNIN [Concomitant]
     Dosage: 10 MG, 2X/DAY
  10. MOBIC [Concomitant]
     Dosage: 15 MG, DAILY
  11. MULTI-VITAMINS [Concomitant]
     Dosage: UNK

REACTIONS (4)
  - DEPRESSION [None]
  - ANXIETY [None]
  - MULTIPLE SCLEROSIS [None]
  - EMOTIONAL DISORDER [None]
